FAERS Safety Report 6637707-1 (Version None)
Quarter: 2010Q1

REPORT INFORMATION
  Report Type: 
  Country: None (occurrence: None)
  Receive Date: 20100312
  Receipt Date: 20100301
  Transmission Date: 20100710
  Serious: Yes (Other)
  Sender: FDA-Public Use
  Company Number: 236773K09USA

PATIENT
  Age: 29 Year
  Sex: Female

DRUGS (6)
  1. REBIF [Suspect]
     Indication: MULTIPLE SCLEROSIS
     Dosage: 44 MCG, 3 IN 1 WEEKS, SUBCUTANEOUS
     Route: 058
     Dates: start: 20090514
  2. AVONEX [Suspect]
  3. VICODIN [Concomitant]
  4. ALEVE [Concomitant]
  5. VERAPAMIL [Concomitant]
  6. DIGOXIN [Concomitant]

REACTIONS (15)
  - ASTHENIA [None]
  - BALANCE DISORDER [None]
  - DEPRESSED LEVEL OF CONSCIOUSNESS [None]
  - DEPRESSION [None]
  - EATING DISORDER [None]
  - EPILEPSY [None]
  - FATIGUE [None]
  - GAIT DISTURBANCE [None]
  - HEADACHE [None]
  - HEART RATE DECREASED [None]
  - HEMIPARESIS [None]
  - INFLUENZA LIKE ILLNESS [None]
  - INJECTION SITE ERYTHEMA [None]
  - PAIN [None]
  - PRESYNCOPE [None]
